FAERS Safety Report 4809372-7 (Version None)
Quarter: 2005Q4

REPORT INFORMATION
  Report Type: 
  Country: None (occurrence: None)
  Receive Date: 20051021
  Receipt Date: 20010718
  Transmission Date: 20060501
  Serious: No
  Sender: FDA-Public Use
  Company Number: US_990929055

PATIENT
  Age: 20 Year
  Sex: Male
  Weight: 77 kg

DRUGS (3)
  1. ZYPREXA [Suspect]
     Indication: SCHIZOPHRENIA
     Dosage: 5 MG/DAY
     Dates: start: 19981201
  2. RITALIN [Concomitant]
  3. LUVOX [Concomitant]

REACTIONS (1)
  - WHITE BLOOD CELL COUNT DECREASED [None]
